FAERS Safety Report 18990658 (Version 1)
Quarter: 2021Q1

REPORT INFORMATION
  Report Type: Spontaneous
  Country: CN (occurrence: CN)
  Receive Date: 20210310
  Receipt Date: 20210310
  Transmission Date: 20210420
  Serious: Yes (Hospitalization, Other)
  Sender: FDA-Public Use
  Company Number: CN-SUN PHARMACEUTICAL INDUSTRIES LTD-2021R1-284901

PATIENT
  Age: 20 Year
  Sex: Male

DRUGS (1)
  1. PREDNISONE. [Suspect]
     Active Substance: PREDNISONE
     Indication: ENCEPHALITIS
     Dosage: 60 MILLIGRAM, DAILY
     Route: 048

REACTIONS (3)
  - Herpes simplex [Recovering/Resolving]
  - Blindness [Recovering/Resolving]
  - Necrotising retinitis [Recovering/Resolving]
